FAERS Safety Report 19711411 (Version 2)
Quarter: 2021Q4

REPORT INFORMATION
  Report Type: Spontaneous
  Country: US (occurrence: US)
  Receive Date: 20210816
  Receipt Date: 20211230
  Transmission Date: 20220304
  Serious: No
  Sender: FDA-Public Use
  Company Number: US-PFIZER INC-202100959952

PATIENT
  Age: 46 Year
  Sex: Female

DRUGS (1)
  1. XELJANZ XR [Suspect]
     Active Substance: TOFACITINIB CITRATE
     Indication: Psoriatic arthropathy
     Dosage: 11 MG, 1X/DAY
     Route: 048
     Dates: start: 20210614

REACTIONS (9)
  - Feeling abnormal [Recovering/Resolving]
  - Back pain [Unknown]
  - Joint swelling [Unknown]
  - Peripheral swelling [Unknown]
  - Discouragement [Recovering/Resolving]
  - Arthralgia [Unknown]
  - Condition aggravated [Unknown]
  - Musculoskeletal stiffness [Unknown]
  - Fatigue [Unknown]

NARRATIVE: CASE EVENT DATE: 20210101
